FAERS Safety Report 15880833 (Version 1)
Quarter: 2019Q1

REPORT INFORMATION
  Report Type: Spontaneous
  Country: FR (occurrence: FR)
  Receive Date: 20190128
  Receipt Date: 20190128
  Transmission Date: 20190417
  Serious: Yes (Other)
  Sender: FDA-Public Use
  Company Number: FR-TEVA-2019-FR-1003480

PATIENT
  Age: 78 Year
  Sex: Female

DRUGS (1)
  1. RIVASTIGMINE (HYDROGENOTARTRATE DE) [Suspect]
     Active Substance: RIVASTIGMINE TARTRATE
     Indication: DEMENTIA WITH LEWY BODIES
     Dosage: 6 MILLIGRAM DAILY;
     Route: 048
     Dates: start: 201805, end: 201808

REACTIONS (2)
  - Condition aggravated [Not Recovered/Not Resolved]
  - Product administration interrupted [Not Recovered/Not Resolved]

NARRATIVE: CASE EVENT DATE: 201808
